FAERS Safety Report 10903236 (Version 1)
Quarter: 2015Q1

REPORT INFORMATION
  Report Type: Spontaneous
  Country: US (occurrence: US)
  Receive Date: 20150311
  Receipt Date: 20150311
  Transmission Date: 20150721
  Serious: Yes (Other)
  Sender: FDA-Public Use
  Company Number: US-INDOCO-000005

PATIENT
  Age: 78 Year
  Sex: Male

DRUGS (2)
  1. BRIMONIDINE [Suspect]
     Active Substance: BRIMONIDINE\BRIMONIDINE TARTRATE
     Indication: OPEN ANGLE GLAUCOMA
     Route: 061
  2. LATANOPROST. [Concomitant]
     Active Substance: LATANOPROST
     Dosage: ONCE AT NIGHT IN BOTH EYES

REACTIONS (1)
  - Conjunctivitis allergic [Recovered/Resolved with Sequelae]
